FAERS Safety Report 15297593 (Version 4)
Quarter: 2018Q4

REPORT INFORMATION
  Report Type: Report from Study
  Country: DE (occurrence: DE)
  Receive Date: 20180820
  Receipt Date: 20181227
  Transmission Date: 20190204
  Serious: Yes (Hospitalization, Other)
  Sender: FDA-Public Use
  Company Number: DE-PFIZER INC-2018326636

PATIENT
  Age: 41 Year
  Sex: Female
  Weight: 76 kg

DRUGS (4)
  1. CARBOPLATIN. [Suspect]
     Active Substance: CARBOPLATIN
     Dosage: 150MG DAY 1,8, 15 CYCLIC
     Dates: start: 20180626, end: 20180731
  2. DEXAMETHASONE. [Concomitant]
     Active Substance: DEXAMETHASONE
     Indication: PROPHYLAXIS
     Dosage: 8 MG, DAY 1
     Route: 042
     Dates: start: 20180626, end: 20180731
  3. PACLITAXEL. [Suspect]
     Active Substance: PACLITAXEL
     Dosage: 181 MG, CYCLIC, DAY 1/8/15
     Dates: start: 20180626, end: 20180731
  4. ONDANSETRON [Concomitant]
     Active Substance: ONDANSETRON
     Indication: PROPHYLAXIS
     Dosage: 8 MG, DAY 1
     Route: 042
     Dates: start: 20180626, end: 20180731

REACTIONS (1)
  - Febrile neutropenia [Recovered/Resolved]

NARRATIVE: CASE EVENT DATE: 20180810
